FAERS Safety Report 15363747 (Version 1)
Quarter: 2018Q3

REPORT INFORMATION
  Report Type: Spontaneous
  Country: JP (occurrence: JP)
  Receive Date: 20180908
  Receipt Date: 20180908
  Transmission Date: 20181010
  Serious: Yes (Other)
  Sender: FDA-Public Use
  Company Number: JP-009507513-1808JPN003200J

PATIENT
  Age: 55 Year
  Sex: Male

DRUGS (1)
  1. LIPOVAS TABLETS 5 [Suspect]
     Active Substance: PRAVASTATIN SODIUM
     Dosage: UNK
     Route: 048

REACTIONS (1)
  - Renal impairment [Unknown]
